FAERS Safety Report 7776283-7 (Version None)
Quarter: 2011Q3

REPORT INFORMATION
  Report Type: 
  Country: None (occurrence: None)
  Receive Date: 20110916
  Receipt Date: 20110909
  Transmission Date: 20111222
  Serious: Yes (Life-Threatening, Hospitalization, Other)
  Sender: FDA-Public Use
  Company Number: THYM-1001255

PATIENT
  Age: 42 Year
  Sex: Female
  Weight: 97.8 kg

DRUGS (28)
  1. POSACONAZOLE [Concomitant]
  2. GANCICLOVIR [Concomitant]
  3. ACETAMINOPHEN [Concomitant]
  4. PREDNISOLONE [Concomitant]
  5. THYMOGLOBULIN [Suspect]
     Indication: STEM CELL TRANSPLANT
     Dosage: 0.5 MG/KG, ONCE, INTRAVENOUS ; 2 MG/KG, QD, INTRAVENOUS
     Route: 042
     Dates: start: 20091003, end: 20091003
  6. THYMOGLOBULIN [Suspect]
     Indication: STEM CELL TRANSPLANT
     Dosage: 0.5 MG/KG, ONCE, INTRAVENOUS ; 2 MG/KG, QD, INTRAVENOUS
     Route: 042
     Dates: start: 20091004, end: 20091005
  7. FOSCARNET [Concomitant]
  8. CYCLOSPORINE [Concomitant]
  9. PANTOPRAZOLE [Concomitant]
  10. VANCOMYCIN [Concomitant]
  11. METOPROLOL TARTRATE [Concomitant]
  12. METOCLOPRAMIDE [Concomitant]
  13. URSO FALK [Concomitant]
  14. VALGANCICLOVIR HCL [Concomitant]
  15. PENTAMIDINE (PENTAMIDINE) [Concomitant]
  16. FENTANYL [Concomitant]
  17. FLUCONAZOLE [Concomitant]
  18. ACYCLOVIR [Concomitant]
  19. MEROPENEM [Concomitant]
  20. NIFEDIPIN (NIFEDIPINE) [Concomitant]
  21. OMEPRAZOLE [Concomitant]
  22. DAPSONE [Concomitant]
  23. HYDROCORTISONE [Concomitant]
  24. METHYLPREDNISOLONE [Concomitant]
  25. FOLIC ACID [Concomitant]
  26. CREON (AMYLASE) [Concomitant]
  27. AMBISOME [Concomitant]
  28. ALLOPURINOL [Concomitant]

REACTIONS (28)
  - MUCOSAL INFLAMMATION [None]
  - ACUTE GRAFT VERSUS HOST DISEASE IN INTESTINE [None]
  - STAPHYLOCOCCAL INFECTION [None]
  - DEVICE RELATED INFECTION [None]
  - POOR VENOUS ACCESS [None]
  - HYPOTENSION [None]
  - CHILLS [None]
  - DIZZINESS [None]
  - FEBRILE NEUTROPENIA [None]
  - DIARRHOEA [None]
  - CYTOMEGALOVIRUS INFECTION [None]
  - HEADACHE [None]
  - RENAL IMPAIRMENT [None]
  - PSEUDOMONAL SEPSIS [None]
  - TACHYCARDIA [None]
  - RESPIRATORY DISTRESS [None]
  - SEPTIC SHOCK [None]
  - MOUTH ULCERATION [None]
  - DEHYDRATION [None]
  - ABDOMINAL PAIN UPPER [None]
  - VOMITING [None]
  - KLEBSIELLA INFECTION [None]
  - URINARY RETENTION [None]
  - PLEURAL EFFUSION [None]
  - PYREXIA [None]
  - ENTEROCOCCAL SEPSIS [None]
  - LOSS OF CONSCIOUSNESS [None]
  - EPSTEIN-BARR VIRUS INFECTION [None]
